FAERS Safety Report 11556067 (Version 1)
Quarter: 2015Q3

REPORT INFORMATION
  Report Type: Spontaneous
  Country: US (occurrence: US)
  Receive Date: 20150925
  Receipt Date: 20150925
  Transmission Date: 20151125
  Serious: No
  Sender: FDA-Public Use
  Company Number: US-WATSON-2014-28513

PATIENT
  Sex: Female
  Weight: 68.2 kg

DRUGS (3)
  1. PREVACID [Concomitant]
     Active Substance: LANSOPRAZOLE
     Indication: GASTROOESOPHAGEAL REFLUX DISEASE
     Dosage: 30 MG, BID
     Route: 065
  2. CARAFATE [Suspect]
     Active Substance: SUCRALFATE
     Dosage: 1 G QID
     Route: 048
  3. CARAFATE [Suspect]
     Active Substance: SUCRALFATE
     Indication: GASTROOESOPHAGEAL REFLUX DISEASE
     Dosage: 1 G QID
     Route: 048

REACTIONS (3)
  - Dysgeusia [Recovering/Resolving]
  - Oral discomfort [Recovering/Resolving]
  - Off label use [Unknown]
